FAERS Safety Report 24096576 (Version 2)
Quarter: 2024Q3

REPORT INFORMATION
  Report Type: Spontaneous
  Country: US (occurrence: US)
  Receive Date: 20240716
  Receipt Date: 20240730
  Transmission Date: 20241016
  Serious: Yes (Death, Hospitalization)
  Sender: NOVARTIS
  Company Number: US-002147023-NVSC2024US146137

PATIENT
  Age: 88 Year
  Sex: Female
  Weight: 62.6 kg

DRUGS (3)
  1. CLOFAZIMINE [Suspect]
     Active Substance: CLOFAZIMINE
     Indication: Mycobacterium abscessus infection
     Dosage: 100 MG, QD (50 MG, SPHERULES)
     Route: 048
     Dates: start: 20141210, end: 20240630
  2. AZITHROMYCIN [Concomitant]
     Active Substance: AZITHROMYCIN
     Indication: Mycobacterium abscessus infection
     Dosage: 250 MG, QD
     Route: 048
  3. AMIKACIN [Concomitant]
     Active Substance: AMIKACIN
     Indication: Mycobacterium abscessus infection
     Dosage: 250 MG, QD
     Route: 055

REACTIONS (11)
  - Arteriosclerosis [Fatal]
  - Arteriosclerosis coronary artery [Fatal]
  - Cardiomegaly [Fatal]
  - Faeces discoloured [Fatal]
  - Product residue present [Fatal]
  - Asthenia [Unknown]
  - Seizure like phenomena [Unknown]
  - Pulse absent [Unknown]
  - Agonal respiration [Unknown]
  - Therapy non-responder [Unknown]
  - Hypophagia [Unknown]

NARRATIVE: CASE EVENT DATE: 20240629
